FAERS Safety Report 8911389 (Version 3)
Quarter: 2013Q1

REPORT INFORMATION
  Report Type: Spontaneous
  Country: GB (occurrence: None)
  Receive Date: 20121113
  Receipt Date: 20121128
  Transmission Date: 20140127
  Serious: Yes (Other)
  Sender: FDA-Public Use
  Company Number: AUR-APL-2012-04813

PATIENT
  Age: 64 Year
  Sex: Male

DRUGS (7)
  1. BISOPROLOL [Suspect]
     Indication: BLOOD PRESSURE MANAGEMENT
     Route: 048
     Dates: start: 2011, end: 2012
  2. CLOPIDOGREL [Suspect]
     Indication: THROMBOCYTOPENIA
     Route: 048
  3. VERAPAMIL [Suspect]
     Indication: ATRIAL FLUTTER
     Route: 048
  4. CYCLOPHOSPHAMIDE [Concomitant]
  5. DOXORUBICIN [Concomitant]
  6. PREDNISOLONE [Concomitant]
  7. VINCRISTINE SULPHATE [Concomitant]

REACTIONS (8)
  - Abdominal pain upper [None]
  - Somnolence [None]
  - Fatigue [None]
  - Dizziness [None]
  - Palpitations [None]
  - Atrial flutter [None]
  - Arthralgia [None]
  - Arthralgia [None]
